FAERS Safety Report 8104337-4 (Version None)
Quarter: 2012Q1

REPORT INFORMATION
  Report Type: 
  Country: None (occurrence: None)
  Receive Date: 20120130
  Receipt Date: 20120120
  Transmission Date: 20120608
  Serious: Yes (Hospitalization)
  Sender: FDA-Public Use
  Company Number: US-BAYER-2011-122698

PATIENT
  Age: 35 Year
  Sex: Female

DRUGS (5)
  1. EXCEDRIN (MIGRAINE) [Concomitant]
  2. YAZ [Suspect]
  3. DROSPIRENONE AND ETHINYL ESTRADIOL [Suspect]
  4. TRAMADOL HCL [Concomitant]
     Dosage: 50 MG, PRN
  5. YASMIN [Suspect]

REACTIONS (4)
  - PAIN [None]
  - INJURY [None]
  - CEREBRAL HAEMORRHAGE [None]
  - CEREBRAL THROMBOSIS [None]
